FAERS Safety Report 4902506-5 (Version None)
Quarter: 2006Q1

REPORT INFORMATION
  Report Type: 
  Country: None (occurrence: None)
  Receive Date: 20060207
  Receipt Date: 20051022
  Transmission Date: 20060701
  Serious: Yes (Hospitalization)
  Sender: FDA-Public Use
  Company Number: GR-MERCK-0510GRC00006

PATIENT
  Age: 73 Year
  Sex: Male

DRUGS (5)
  1. PROSCAR [Suspect]
     Indication: BENIGN PROSTATIC HYPERPLASIA
     Route: 048
     Dates: start: 20051020, end: 20051022
  2. FELODIPINE [Concomitant]
     Indication: HYPERTENSION
     Route: 048
  3. ROSUVASTATIN CALCIUM [Concomitant]
     Indication: HYPERCHOLESTEROLAEMIA
     Route: 048
  4. RAMIPRIL [Concomitant]
     Indication: HYPERTENSION
     Route: 048
  5. ASPIRIN [Concomitant]
     Route: 048

REACTIONS (8)
  - BENIGN PROSTATIC HYPERPLASIA [None]
  - BLOOD DISORDER [None]
  - BUTTOCK PAIN [None]
  - CONDITION AGGRAVATED [None]
  - GENITAL DISORDER MALE [None]
  - HYPOAESTHESIA [None]
  - PAIN [None]
  - URINARY RETENTION [None]
